FAERS Safety Report 10917109 (Version 2)
Quarter: 2015Q2

REPORT INFORMATION
  Report Type: Report from Study
  Country: JP (occurrence: JP)
  Receive Date: 20150316
  Receipt Date: 20150423
  Transmission Date: 20150821
  Serious: Yes (Hospitalization)
  Sender: FDA-Public Use
  Company Number: JP-EISAI MEDICAL RESEARCH-EC-2015-004938

PATIENT
  Age: 9 Year
  Sex: Male
  Weight: 16.1 kg

DRUGS (14)
  1. INOVELON [Suspect]
     Active Substance: RUFINAMIDE
     Indication: LENNOX-GASTAUT SYNDROME
     Route: 048
     Dates: start: 20131113, end: 20131122
  2. INOVELON [Suspect]
     Active Substance: RUFINAMIDE
     Route: 048
     Dates: start: 20131123, end: 20131204
  3. DIAZEPAM. [Concomitant]
     Active Substance: DIAZEPAM
  4. INOVELON [Suspect]
     Active Substance: RUFINAMIDE
     Route: 048
     Dates: start: 20131219, end: 20140115
  5. INOVELON [Suspect]
     Active Substance: RUFINAMIDE
     Route: 048
     Dates: start: 20131205, end: 20131218
  6. INOVELON [Suspect]
     Active Substance: RUFINAMIDE
     Route: 048
     Dates: start: 20140116, end: 20140303
  7. TOPINA [Concomitant]
     Active Substance: TOPIRAMATE
  8. CARBOCISTEINE [Concomitant]
     Active Substance: CARBOCYSTEINE
  9. INOVELON [Suspect]
     Active Substance: RUFINAMIDE
     Route: 048
     Dates: start: 20140304, end: 20140320
  10. INOVELON [Suspect]
     Active Substance: RUFINAMIDE
     Route: 048
     Dates: start: 20140321, end: 20140325
  11. TIZANIDINE (TIZANIDINE) [Concomitant]
     Active Substance: TIZANIDINE
  12. L-CARTIN [Concomitant]
     Active Substance: LEVOCARNITINE HYDROCHLORIDE
  13. PHENOBAL [Concomitant]
     Active Substance: PHENOBARBITAL
  14. LAMICTAL [Concomitant]
     Active Substance: LAMOTRIGINE

REACTIONS (2)
  - Somnolence [Recovered/Resolved]
  - Gastrooesophageal reflux disease [Recovering/Resolving]

NARRATIVE: CASE EVENT DATE: 20140123
